APPROVED DRUG PRODUCT: PREDNISOLONE SODIUM PHOSPHATE
Active Ingredient: PREDNISOLONE SODIUM PHOSPHATE
Strength: EQ 25MG BASE/5ML
Dosage Form/Route: SOLUTION;ORAL
Application: A091396 | Product #001 | TE Code: AA
Applicant: MISSION PHARMACAL CO
Approved: Sep 13, 2010 | RLD: No | RS: Yes | Type: RX